FAERS Safety Report 8545061-3 (Version None)
Quarter: 2012Q3

REPORT INFORMATION
  Report Type: 
  Country: None (occurrence: None)
  Receive Date: 20120727
  Receipt Date: 20120718
  Transmission Date: 20120928
  Serious: Yes (Other)
  Sender: FDA-Public Use
  Company Number: HR-JNJFOC-20120703305

PATIENT
  Age: 42 Year
  Sex: Male

DRUGS (4)
  1. NICORETTE [Suspect]
     Route: 062
  2. AMLODIPINE BESYLATE [Suspect]
     Indication: CARDIAC DISORDER
     Route: 048
     Dates: start: 20120201
  3. NICORETTE [Suspect]
     Indication: SMOKING CESSATION THERAPY
     Route: 062
     Dates: start: 20120628
  4. WELLBUTRIN SR [Suspect]
     Indication: PRODUCT USED FOR UNKNOWN INDICATION
     Route: 048
     Dates: start: 20120201

REACTIONS (3)
  - PRODUCT QUALITY ISSUE [None]
  - CHOKING [None]
  - HYPERSENSITIVITY [None]
